FAERS Safety Report 20323023 (Version 1)
Quarter: 2022Q1

REPORT INFORMATION
  Report Type: Spontaneous
  Country: FR (occurrence: FR)
  Receive Date: 20220111
  Receipt Date: 20220111
  Transmission Date: 20220423
  Serious: Yes (Hospitalization)
  Sender: FDA-Public Use
  Company Number: None

PATIENT
  Age: 80 Year
  Sex: Male
  Weight: 58.4 kg

DRUGS (29)
  1. GABAPENTIN [Suspect]
     Active Substance: GABAPENTIN
     Indication: Wound infection
     Dosage: 100 MILLIGRAM, QD
     Dates: start: 20210820, end: 20210820
  2. GABAPENTIN [Suspect]
     Active Substance: GABAPENTIN
     Dosage: 400 MILLIGRAM, QD
     Dates: start: 20210817, end: 20210819
  3. CLINDAMYCIN [Suspect]
     Active Substance: CLINDAMYCIN
     Indication: Wound infection
     Dosage: 600 MILLIGRAM, Q6H
     Route: 048
     Dates: start: 20210817, end: 20210822
  4. CLINDAMYCIN [Suspect]
     Active Substance: CLINDAMYCIN
     Dosage: 600 MILLIGRAM
     Route: 041
     Dates: start: 20210824, end: 20210830
  5. CLINDAMYCIN [Suspect]
     Active Substance: CLINDAMYCIN
     Dosage: 600 MILLIGRAM
     Route: 048
     Dates: start: 20210817, end: 20210825
  6. MOXIFLOXACIN [Suspect]
     Active Substance: MOXIFLOXACIN
     Indication: Wound infection
     Dosage: UNK
     Dates: start: 20210811, end: 20210819
  7. NEFOPAM [Suspect]
     Active Substance: NEFOPAM
     Indication: Product used for unknown indication
     Dosage: UNK
     Dates: start: 20210814, end: 20210820
  8. MORPHINE SULFATE [Suspect]
     Active Substance: MORPHINE SULFATE
     Indication: Product used for unknown indication
     Dosage: 10 MILLIGRAM
     Route: 048
     Dates: start: 20210814, end: 20210816
  9. MORPHINE SULFATE [Suspect]
     Active Substance: MORPHINE SULFATE
     Dosage: 20 MG LE MATIN, 10MG LE SOIR
     Route: 048
     Dates: start: 20210816, end: 20210817
  10. MORPHINE SULFATE [Suspect]
     Active Substance: MORPHINE SULFATE
     Dosage: 10 MILLIGRAM, QD
     Route: 048
     Dates: start: 20210817, end: 20210820
  11. DULOXETINE HYDROCHLORIDE [Suspect]
     Active Substance: DULOXETINE HYDROCHLORIDE
     Indication: Product used for unknown indication
     Dosage: UNK
     Dates: start: 20210716, end: 20210817
  12. RIFAMPIN [Suspect]
     Active Substance: RIFAMPIN
     Indication: Wound infection
     Dosage: UNK
     Dates: start: 20210811, end: 20210817
  13. LERCANIDIPINE HYDROCHLORIDE [Concomitant]
     Active Substance: LERCANIDIPINE HYDROCHLORIDE
     Dosage: 20 MILLIGRAM, QD
     Route: 048
     Dates: end: 20210822
  14. PIPERACILLIN SODIUM [Concomitant]
     Active Substance: PIPERACILLIN SODIUM
     Indication: Wound infection
     Dosage: 4 GRAM, Q8H
     Route: 041
     Dates: start: 20210819
  15. URAPIDIL [Concomitant]
     Active Substance: URAPIDIL
     Dosage: 60 MILLIGRAM, QD, FORME LP
     Route: 048
     Dates: end: 20210822
  16. ASPIRIN [Concomitant]
     Active Substance: ASPIRIN
     Dosage: 100 MILLIGRAM, QD
     Route: 048
     Dates: end: 20210822
  17. TAZOBACTAM [Concomitant]
     Active Substance: TAZOBACTAM
     Indication: Wound infection
     Dosage: UNK
     Route: 041
     Dates: start: 20210819
  18. ONDANSETRON [Concomitant]
     Active Substance: ONDANSETRON
     Dosage: 8 MILLIGRAM, QD
     Route: 048
     Dates: start: 20210815, end: 20210830
  19. OXYCODONE HYDROCHLORIDE [Concomitant]
     Active Substance: OXYCODONE HYDROCHLORIDE
     Dosage: 1 MILLIGRAM
     Route: 041
     Dates: start: 20210820, end: 20210821
  20. OXYCODONE HYDROCHLORIDE [Concomitant]
     Active Substance: OXYCODONE HYDROCHLORIDE
     Dosage: 48 MILLIGRAM, QD
     Route: 041
     Dates: start: 20210903, end: 20210906
  21. OXYCODONE HYDROCHLORIDE [Concomitant]
     Active Substance: OXYCODONE HYDROCHLORIDE
     Dosage: 14.4 MILLIGRAM, QD
     Route: 041
     Dates: start: 20210822, end: 20210827
  22. OXYCODONE HYDROCHLORIDE [Concomitant]
     Active Substance: OXYCODONE HYDROCHLORIDE
     Dosage: 9.6 MILLIGRAM
     Route: 041
     Dates: start: 20210821, end: 20210822
  23. OXYCODONE HYDROCHLORIDE [Concomitant]
     Active Substance: OXYCODONE HYDROCHLORIDE
     Dosage: 38.4 MILLIGRAM, QD
     Route: 041
     Dates: start: 20210831, end: 20210903
  24. OXYCODONE HYDROCHLORIDE [Concomitant]
     Active Substance: OXYCODONE HYDROCHLORIDE
     Dosage: 33.6 MILLIGRAM, QD
     Route: 041
     Dates: start: 20210827, end: 20210831
  25. MIDAZOLAM [Concomitant]
     Active Substance: MIDAZOLAM
     Dosage: 24 MILLIGRAM, QD
     Route: 041
     Dates: start: 20210902, end: 20210906
  26. MIDAZOLAM [Concomitant]
     Active Substance: MIDAZOLAM
     Dosage: 9.4 MILLIGRAM, QD
     Route: 041
     Dates: start: 20210827, end: 20210830
  27. MIDAZOLAM [Concomitant]
     Active Substance: MIDAZOLAM
     Dosage: 2.4 MILLIGRAM, QD
     Route: 041
     Dates: start: 20210821, end: 20210822
  28. MIDAZOLAM [Concomitant]
     Active Substance: MIDAZOLAM
     Dosage: 7 MILLIGRAM, QD
     Route: 041
     Dates: start: 20210822, end: 20210827
  29. MIDAZOLAM [Concomitant]
     Active Substance: MIDAZOLAM
     Dosage: 18.6 MILLIGRAM, QD
     Route: 041
     Dates: start: 20210830, end: 20210902

REACTIONS (1)
  - Cholestatic liver injury [Recovering/Resolving]

NARRATIVE: CASE EVENT DATE: 20210823
